FAERS Safety Report 15482441 (Version 1)
Quarter: 2018Q4

REPORT INFORMATION
  Report Type: Spontaneous
  Country: US (occurrence: US)
  Receive Date: 20181003
  Receipt Date: 20181003
  Transmission Date: 20190205
  Serious: Yes (Other)
  Sender: FDA-Public Use
  Company Number: None

PATIENT
  Age: 53 Year
  Sex: Female
  Weight: 71.1 kg

DRUGS (12)
  1. VITAMIN D [Concomitant]
     Active Substance: CHOLECALCIFEROL
  2. ZINC LOZENGES [Concomitant]
  3. HALLS COUGH DROPS [Concomitant]
  4. MICROGESTIN FE [Concomitant]
     Active Substance: ETHINYL ESTRADIOL\FERROUS FUMARATE\NORETHINDRONE ACETATE
  5. MULTIVITAMIN [Concomitant]
     Active Substance: VITAMINS
  6. ZANTAC [Concomitant]
     Active Substance: RANITIDINE HYDROCHLORIDE
  7. ADVIL SINUS CONGESTION AND PAIN [Suspect]
     Active Substance: IBUPROFEN\PHENYLEPHRINE HYDROCHLORIDE
     Indication: SINUS CONGESTION
     Dosage: ?          QUANTITY:1 CAPSULE(S);?
     Route: 048
     Dates: start: 20181002, end: 20181002
  8. ADVIL SINUS CONGESTION AND PAIN [Suspect]
     Active Substance: IBUPROFEN\PHENYLEPHRINE HYDROCHLORIDE
     Indication: NASOPHARYNGITIS
     Dosage: ?          QUANTITY:1 CAPSULE(S);?
     Route: 048
     Dates: start: 20181002, end: 20181002
  9. FISH OIL [Concomitant]
     Active Substance: FISH OIL
  10. SAMBUCUS ELDERBERRY SYRUP [Concomitant]
  11. ZYRTEC [Concomitant]
     Active Substance: CETIRIZINE HYDROCHLORIDE
  12. CALCIUM [Concomitant]
     Active Substance: CALCIUM

REACTIONS (4)
  - Loss of consciousness [None]
  - Sedation [None]
  - Somnolence [None]
  - Lethargy [None]

NARRATIVE: CASE EVENT DATE: 20181002
